FAERS Safety Report 19030800 (Version 2)
Quarter: 2021Q3

REPORT INFORMATION
  Report Type: Spontaneous
  Country: IT (occurrence: IT)
  Receive Date: 20210319
  Receipt Date: 20210731
  Transmission Date: 20211014
  Serious: Yes (Other)
  Sender: FDA-Public Use
  Company Number: NVSC2021IT058496

PATIENT
  Age: 55 Year
  Sex: Male
  Weight: 72 kg

DRUGS (6)
  1. FLUOROURACIL. [Suspect]
     Active Substance: FLUOROURACIL
     Indication: RECTAL ADENOCARCINOMA
     Dosage: 555 MG,CYCLIC
     Route: 042
     Dates: start: 20210118
  2. AVASTIN [Suspect]
     Active Substance: BEVACIZUMAB
     Indication: RECTAL ADENOCARCINOMA
     Dosage: 360 MG, CYCLIC
     Route: 042
     Dates: start: 20210118
  3. CALCIUM LEVOFOLINATE OR INTRAVENOUS INFUSION [Suspect]
     Active Substance: LEVOLEUCOVORIN CALCIUM
     Indication: RECTAL ADENOCARCINOMA
     Dosage: 275 MG, CYCLIC
     Route: 042
     Dates: start: 20210118
  4. FLUOROURACIL. [Suspect]
     Active Substance: FLUOROURACIL
     Dosage: 3330 MG,CYCLIC
     Route: 042
     Dates: start: 20210118
  5. IRINOTECAN HYDROCHLORIDE TRIHYDRATE [Suspect]
     Active Substance: IRINOTECAN HYDROCHLORIDE
     Indication: RECTAL ADENOCARCINOMA
     Dosage: 250 MG,CYCLIC
     Route: 042
     Dates: start: 20210215
  6. AVASTIN [Suspect]
     Active Substance: BEVACIZUMAB
     Dosage: 360 MG,CYCLIC
     Route: 042
     Dates: start: 20210118

REACTIONS (3)
  - Neutropenia [Not Recovered/Not Resolved]
  - Diarrhoea [Not Recovered/Not Resolved]
  - Constipation [Not Recovered/Not Resolved]

NARRATIVE: CASE EVENT DATE: 20210301
